FAERS Safety Report 6666763-X (Version None)
Quarter: 2010Q2

REPORT INFORMATION
  Report Type: 
  Country: None (occurrence: None)
  Receive Date: 20100405
  Receipt Date: 20100322
  Transmission Date: 20101027
  Serious: Yes (Other)
  Sender: FDA-Public Use
  Company Number: PT-RANBAXY-2010RR-32413

PATIENT
  Age: 62 Year
  Sex: Female

DRUGS (3)
  1. LORAZEPAM [Suspect]
     Indication: INSOMNIA
     Dosage: 1 MG, UNK
  2. RAMIPRIL [Concomitant]
     Indication: HYPERTENSION
  3. DIAZEPAM [Concomitant]
     Indication: INSOMNIA
     Dosage: 5 MG, QD

REACTIONS (1)
  - LIBIDO INCREASED [None]
